FAERS Safety Report 21395698 (Version 6)
Quarter: 2022Q4

REPORT INFORMATION
  Report Type: Report from Study
  Country: CN (occurrence: CN)
  Receive Date: 20220930
  Receipt Date: 20221124
  Transmission Date: 20230113
  Serious: Yes (Other)
  Sender: FDA-Public Use
  Company Number: CN-TAKEDA-2022TUS068237

PATIENT
  Age: 70 Year
  Sex: Male
  Weight: 59 kg

DRUGS (20)
  1. IXAZOMIB [Suspect]
     Active Substance: IXAZOMIB
     Indication: Plasma cell myeloma
     Dosage: 4 MILLIGRAM, 1/WEEK
     Route: 048
     Dates: start: 20220325
  2. Febuxostate bluepharma [Concomitant]
     Indication: Gout
     Dosage: 40 MILLIGRAM, QD
     Route: 048
     Dates: start: 20220418, end: 20220427
  3. ALENDRONATE SODIUM [Concomitant]
     Active Substance: ALENDRONATE SODIUM
     Indication: Prophylaxis
     Dosage: UNK UNK, 1/WEEK
     Route: 048
     Dates: start: 20220417
  4. CALCIUM CARBONATE\CHOLECALCIFEROL [Concomitant]
     Active Substance: CALCIUM CARBONATE\CHOLECALCIFEROL
     Indication: Mineral supplementation
     Dosage: UNK UNK, QD
     Route: 048
  5. COLCHICINE [Concomitant]
     Active Substance: COLCHICINE
     Indication: Gout
     Dosage: 0.5 MILLIGRAM, QD
     Route: 048
     Dates: start: 20220418, end: 20220427
  6. SODIUM BICARBONATE [Concomitant]
     Active Substance: SODIUM BICARBONATE
     Indication: Acid base balance
     Dosage: 0.5 MILLIGRAM, QD
     Route: 048
     Dates: start: 20220418, end: 20220427
  7. LIDOCAINE [Concomitant]
     Active Substance: LIDOCAINE
     Indication: Anaesthesia
     Dosage: 0.1 GRAM
     Route: 050
     Dates: start: 20220516, end: 20220516
  8. HEPARIN SODIUM [Concomitant]
     Active Substance: HEPARIN SODIUM
     Indication: Anticoagulant therapy
     Dosage: UNK UNK, QD
     Route: 058
     Dates: start: 20220516, end: 20220516
  9. LORATADINE [Concomitant]
     Active Substance: LORATADINE
     Indication: Allergy prophylaxis
     Dosage: 10 MILLIGRAM, QD
     Route: 048
     Dates: start: 20220418, end: 20220419
  10. ALBUMIN HUMAN [Concomitant]
     Active Substance: ALBUMIN HUMAN
     Indication: Supplementation therapy
     Dosage: 50 MILLILITER, QD
     Route: 042
     Dates: start: 20220516, end: 20220517
  11. SODIUM CHLORIDE [Concomitant]
     Active Substance: SODIUM CHLORIDE
     Indication: Blood albumin increased
     Dosage: 100 MILLIGRAM, QD
     Route: 042
     Dates: start: 20220418, end: 20220421
  12. SODIUM CHLORIDE [Concomitant]
     Active Substance: SODIUM CHLORIDE
     Dosage: 100 MILLIGRAM
     Route: 042
     Dates: start: 20220419, end: 20220419
  13. PANTOPRAZOLE SODIUM [Concomitant]
     Active Substance: PANTOPRAZOLE SODIUM
     Indication: Prophylaxis
     Dosage: UNK
     Route: 042
     Dates: start: 20220516, end: 20220516
  14. DEXAMETHASONE SODIUM PHOSPHATE [Concomitant]
     Active Substance: DEXAMETHASONE SODIUM PHOSPHATE
     Indication: Plasma cell myeloma
     Dosage: 20 MILLIGRAM
     Route: 042
     Dates: start: 20220516, end: 20220516
  15. CHLORPHENIRAMINE MALEATE [Concomitant]
     Active Substance: CHLORPHENIRAMINE MALEATE
     Indication: Hypersensitivity
     Dosage: 4 MILLIGRAM, TID
     Route: 048
     Dates: start: 20220419, end: 20220426
  16. CHLORPHENIRAMINE MALEATE [Concomitant]
     Active Substance: CHLORPHENIRAMINE MALEATE
     Indication: Nasopharyngitis
  17. ZOLPIDEM TARTRATE [Concomitant]
     Active Substance: ZOLPIDEM TARTRATE
     Indication: Sedation
     Dosage: 10 MILLIGRAM
     Route: 048
     Dates: start: 20220420, end: 20220420
  18. ZOLPIDEM TARTRATE [Concomitant]
     Active Substance: ZOLPIDEM TARTRATE
     Indication: Plasma cell myeloma
     Dosage: UNK UNK, 1/WEEK
     Route: 048
     Dates: start: 20220426
  19. RABEPRAZOLE SODIUM [Concomitant]
     Active Substance: RABEPRAZOLE SODIUM
     Indication: Prophylaxis
     Dosage: UNK UNK, QD
     Route: 048
     Dates: start: 20220517, end: 20220530
  20. DEXAMETHASONE ACETATE [Concomitant]
     Active Substance: DEXAMETHASONE ACETATE
     Indication: Plasma cell myeloma
     Dosage: UNK UNK, 1/WEEK
     Route: 048
     Dates: start: 20220523, end: 20220530

REACTIONS (6)
  - Pneumonia [Recovering/Resolving]
  - Muscular weakness [Recovering/Resolving]
  - Herpes zoster [Recovering/Resolving]
  - Blood albumin decreased [Recovered/Resolved]
  - Pyrexia [Recovered/Resolved]
  - Diarrhoea [Recovered/Resolved]

NARRATIVE: CASE EVENT DATE: 20220602
